FAERS Safety Report 10622785 (Version 1)
Quarter: 2014Q4

REPORT INFORMATION
  Report Type: Spontaneous
  Country: US (occurrence: None)
  Receive Date: 20141202
  Receipt Date: 20141202
  Transmission Date: 20150529
  Serious: Yes (Other)
  Sender: FDA-Public Use
  Company Number: None

PATIENT
  Age: 11 Year
  Sex: Female
  Weight: 41.73 kg

DRUGS (1)
  1. METHYLPHENIDATE HCL EXTENDED-REL [Suspect]
     Active Substance: METHYLPHENIDATE HYDROCHLORIDE
     Indication: ATTENTION DEFICIT/HYPERACTIVITY DISORDER
     Dosage: 1 PILL
     Route: 048
     Dates: start: 20130203, end: 20141103

REACTIONS (7)
  - Affect lability [None]
  - Rebound effect [None]
  - Surgery [None]
  - Drug effect decreased [None]
  - Product quality issue [None]
  - Screaming [None]
  - Product substitution issue [None]

NARRATIVE: CASE EVENT DATE: 20130801
